FAERS Safety Report 16303026 (Version 1)
Quarter: 2019Q2

REPORT INFORMATION
  Report Type: Spontaneous
  Country: US (occurrence: US)
  Receive Date: 20190513
  Receipt Date: 20190513
  Transmission Date: 20190711
  Serious: Yes (Other)
  Sender: FDA-Public Use
  Company Number: US-AEGERION PHARMACEUTICAL, INC-AEGR004259

PATIENT
  Sex: Female

DRUGS (2)
  1. MYALEPT [Suspect]
     Active Substance: METRELEPTIN
     Indication: CONGENITAL GENERALISED LIPODYSTROPHY
     Dosage: 5 MG, QD
     Route: 058
  2. MYALEPT [Suspect]
     Active Substance: METRELEPTIN
     Dosage: 2.5 MG, QD
     Route: 058

REACTIONS (6)
  - Condition aggravated [Unknown]
  - Fatigue [Unknown]
  - Mobility decreased [Unknown]
  - Impaired gastric emptying [Unknown]
  - Hypophagia [Unknown]
  - Abdominal pain [Unknown]

NARRATIVE: CASE EVENT DATE: 201904
